FAERS Safety Report 8743283 (Version 2)
Quarter: 2012Q4

REPORT INFORMATION
  Report Type: Report from Study
  Country: FR (occurrence: FR)
  Receive Date: 20120824
  Receipt Date: 20120904
  Transmission Date: 20130627
  Serious: Yes (Hospitalization)
  Sender: FDA-Public Use
  Company Number: FR-009507513-1208FRA008971

PATIENT

DRUGS (8)
  1. BOCEPREVIR [Suspect]
     Indication: HEPATITIS C
     Dosage: UNK, Unknown
     Dates: start: 20120531, end: 20120726
  2. VIRAFERONPEG [Suspect]
     Indication: HEPATITIS C
     Dosage: 80 Microgram, qw
     Dates: start: 20120503
  3. REBETOL [Suspect]
     Indication: HEPATITIS C
     Dosage: 200 mg, qid
     Dates: start: 20120503
  4. EMTRIVA [Concomitant]
     Indication: HIV INFECTION
     Dosage: 200 mg, qd
     Dates: start: 20100719
  5. REYATAZ [Concomitant]
     Indication: HIV INFECTION
     Dosage: 300 mg, qd
     Dates: start: 20111212
  6. NORVIR [Concomitant]
     Indication: HIV INFECTION
     Dosage: 100 mg, qd
     Dates: start: 20111212
  7. ISENTRESS [Concomitant]
     Indication: HIV INFECTION
     Dosage: 400 mg, bid
     Dates: start: 20100719
  8. INIPOMP [Concomitant]
     Indication: OESOPHAGEAL ULCER
     Dosage: 40 mg, qd
     Dates: start: 20080626

REACTIONS (1)
  - Hospitalisation [Recovered/Resolved]
